FAERS Safety Report 10283624 (Version 2)
Quarter: 2014Q4

REPORT INFORMATION
  Report Type: Spontaneous
  Country: IT (occurrence: IT)
  Receive Date: 20140708
  Receipt Date: 20141007
  Transmission Date: 20150528
  Serious: Yes (Hospitalization)
  Sender: FDA-Public Use
  Company Number: IT-009507513-1407ITA002912

PATIENT
  Age: 91 Year
  Sex: Female

DRUGS (5)
  1. SERTRALINE HYDROCHLORIDE. [Concomitant]
     Active Substance: SERTRALINE HYDROCHLORIDE
  2. CARDIOASPIRIN [Concomitant]
     Active Substance: ASPIRIN
  3. LOSAPREX 50 MG COMPRESSE RIVESTITE CON FILM [Suspect]
     Active Substance: LOSARTAN POTASSIUM
     Indication: HYPERTENSION
     Dosage: 1 DOSE UNIT DAILY
     Route: 048
     Dates: start: 20140201, end: 20140702
  4. LASIX [Suspect]
     Active Substance: FUROSEMIDE
     Dosage: 1 DOSE UNIT
     Route: 048
     Dates: start: 20130101, end: 20140702
  5. LASIX [Suspect]
     Active Substance: FUROSEMIDE
     Dosage: UNK, QD
     Route: 048
     Dates: start: 20140703

REACTIONS (1)
  - Hyponatraemia [Recovered/Resolved]

NARRATIVE: CASE EVENT DATE: 20140702
